FAERS Safety Report 20985202 (Version 1)
Quarter: 2022Q2

REPORT INFORMATION
  Report Type: Spontaneous
  Country: US (occurrence: None)
  Receive Date: 20220621
  Receipt Date: 20220621
  Transmission Date: 20220720
  Serious: No
  Sender: FDA-Public Use
  Company Number: US-ROCHE-2970161

PATIENT
  Sex: Female

DRUGS (5)
  1. XELODA [Suspect]
     Active Substance: CAPECITABINE
     Indication: Product used for unknown indication
     Route: 048
  2. TUKYSA [Suspect]
     Active Substance: TUCATINIB
     Indication: Intraductal proliferative breast lesion
     Route: 065
  3. TUKYSA [Suspect]
     Active Substance: TUCATINIB
     Indication: Metastases to bone
  4. TUKYSA [Suspect]
     Active Substance: TUCATINIB
     Indication: Intraductal proliferative breast lesion
  5. BACTRIM [Concomitant]
     Active Substance: SULFAMETHOXAZOLE\TRIMETHOPRIM

REACTIONS (6)
  - Somnolence [Unknown]
  - Blood bilirubin increased [Unknown]
  - Platelet count increased [Unknown]
  - Hepatic enzyme increased [Unknown]
  - Neck pain [Unknown]
  - Fatigue [Unknown]
